FAERS Safety Report 7163739-3 (Version None)
Quarter: 2010Q4

REPORT INFORMATION
  Report Type: 
  Country: None (occurrence: None)
  Receive Date: 20101215
  Receipt Date: 20100607
  Transmission Date: 20110411
  Serious: Yes (Other)
  Sender: FDA-Public Use
  Company Number: FR-PFIZER INC-2010071286

PATIENT
  Sex: Male

DRUGS (5)
  1. LYRICA [Suspect]
     Dosage: 150 MG, 2X/DAY
  2. ATACAND [Concomitant]
  3. LASIX [Concomitant]
  4. NOVONORM [Concomitant]
  5. ATENOLOL [Concomitant]

REACTIONS (1)
  - CLONUS [None]
